FAERS Safety Report 6423714-0 (Version None)
Quarter: 2009Q4

REPORT INFORMATION
  Report Type: 
  Country: None (occurrence: None)
  Receive Date: 20091028
  Receipt Date: 20091013
  Transmission Date: 20100525
  Serious: Yes (Hospitalization)
  Sender: FDA-Public Use
  Company Number: DSA_41847_2009

PATIENT
  Age: 81 Year
  Sex: Female

DRUGS (2)
  1. ENALAPRIL MALEATE AND HYDROCHLOROTHIAZIDE [Suspect]
     Indication: HYPERTENSION
     Dosage: (DF ORAL)
     Route: 048
     Dates: end: 20090620
  2. FLUOXETINE HCL [Suspect]
     Indication: DRUG USE FOR UNKNOWN INDICATION
     Dosage: (DF)

REACTIONS (10)
  - DEPRESSION [None]
  - DIVERTICULUM [None]
  - FALL [None]
  - FATIGUE [None]
  - HYPONATRAEMIA [None]
  - HYPOTHYROIDISM [None]
  - INTERNATIONAL NORMALISED RATIO INCREASED [None]
  - MALAISE [None]
  - NEUTROPHIL COUNT INCREASED [None]
  - VERTIGO [None]
